FAERS Safety Report 5294042-4 (Version None)
Quarter: 2007Q2

REPORT INFORMATION
  Report Type: 
  Country: None (occurrence: None)
  Receive Date: 20070404
  Receipt Date: 20070228
  Transmission Date: 20071010
  Serious: Yes (Other)
  Sender: FDA-Public Use
  Company Number: 239010

PATIENT
  Age: 63 Year
  Sex: Male

DRUGS (8)
  1. LUCENTIS [Suspect]
     Indication: MACULAR DEGENERATION
     Dosage: UNK, UNK, INTRAVITREAL
     Dates: start: 20070129
  2. ASPIRIN [Concomitant]
  3. ZOCOR [Concomitant]
  4. XALATAN [Concomitant]
  5. GLUCOSAMINE/CHONDROITIN (CHONDROITIN SULFATE, GLUCOSAMINE) [Concomitant]
  6. NIACIN (NIACIN) [Concomitant]
  7. FISH OIL (FISH OIL) [Concomitant]
  8. COUMADIN [Concomitant]

REACTIONS (1)
  - PANIC ATTACK [None]
